FAERS Safety Report 4812112-9 (Version None)
Quarter: 2005Q4

REPORT INFORMATION
  Report Type: 
  Country: None (occurrence: None)
  Receive Date: 20051028
  Receipt Date: 20040210
  Transmission Date: 20060501
  Serious: No
  Sender: FDA-Public Use
  Company Number: US-GLAXOSMITHKLINE-A0497723A

PATIENT
  Age: 79 Year
  Sex: Male

DRUGS (3)
  1. ADVAIR DISKUS 100/50 [Suspect]
     Indication: DRUG USE FOR UNKNOWN INDICATION
     Dosage: 500MCG TWICE PER DAY
     Route: 055
  2. COMBIVENT [Concomitant]
     Route: 065
  3. STEROIDS [Concomitant]
     Route: 048

REACTIONS (1)
  - DRUG INEFFECTIVE [None]
